FAERS Safety Report 16723175 (Version 2)
Quarter: 2019Q3

REPORT INFORMATION
  Report Type: Report from Study
  Country: None (occurrence: US)
  Receive Date: 20190821
  Receipt Date: 20190831
  Transmission Date: 20191005
  Serious: Yes (Hospitalization, Other)
  Sender: FDA-Public Use
  Company Number: US-ABBVIE-19K-163-2890781-00

PATIENT
  Age: 45 Year
  Sex: Female
  Weight: 101.24 kg

DRUGS (5)
  1. HUMIRA [Suspect]
     Active Substance: ADALIMUMAB
     Indication: PSORIATIC ARTHROPATHY
     Route: 058
     Dates: start: 2016, end: 20190627
  2. OTEZLA [Concomitant]
     Active Substance: APREMILAST
     Indication: PSORIATIC ARTHROPATHY
  3. METOPROLOL. [Concomitant]
     Active Substance: METOPROLOL
     Indication: HYPERTENSION
  4. LIPITOR [Concomitant]
     Active Substance: ATORVASTATIN CALCIUM
     Indication: BLOOD CHOLESTEROL INCREASED
  5. HUMIRA [Suspect]
     Active Substance: ADALIMUMAB
     Route: 058
     Dates: start: 20190718

REACTIONS (11)
  - Staphylococcal infection [Unknown]
  - Weight decreased [Recovering/Resolving]
  - Fatigue [Unknown]
  - Pain [Unknown]
  - Cerebrospinal fluid leakage [Recovering/Resolving]
  - Staphylococcal infection [Unknown]
  - Type 2 diabetes mellitus [Recovering/Resolving]
  - Purulent discharge [Recovering/Resolving]
  - Wound infection staphylococcal [Not Recovered/Not Resolved]
  - Incision site discharge [Recovering/Resolving]
  - Headache [Not Recovered/Not Resolved]

NARRATIVE: CASE EVENT DATE: 2018
